FAERS Safety Report 17661742 (Version 1)
Quarter: 2020Q2

REPORT INFORMATION
  Report Type: Spontaneous
  Country: DE (occurrence: DE)
  Receive Date: 20200413
  Receipt Date: 20200413
  Transmission Date: 20200713
  Serious: Yes (Hospitalization)
  Sender: FDA-Public Use
  Company Number: DE-PFIZER INC-2020149235

PATIENT
  Age: 17 Year
  Sex: Female
  Weight: 63 kg

DRUGS (2)
  1. IBUPROFEN. [Suspect]
     Active Substance: IBUPROFEN
     Indication: DYSURIA
     Dosage: 3600 MG, SINGLE
     Route: 048
     Dates: start: 20191123, end: 20191123
  2. IBUPROFEN. [Suspect]
     Active Substance: IBUPROFEN
     Dosage: 2400 MG, SINGLE
     Route: 048
     Dates: start: 20191124, end: 20191124

REACTIONS (3)
  - Overdose [Unknown]
  - Headache [Recovered/Resolved]
  - Dizziness [Recovered/Resolved]

NARRATIVE: CASE EVENT DATE: 20191123
